FAERS Safety Report 15633951 (Version 3)
Quarter: 2018Q4

REPORT INFORMATION
  Report Type: Spontaneous
  Country: AT (occurrence: AT)
  Receive Date: 20181119
  Receipt Date: 20181211
  Transmission Date: 20190205
  Serious: Yes (Other)
  Sender: FDA-Public Use
  Company Number: PHHY2018AU139478

PATIENT
  Age: 22 Year
  Sex: Male

DRUGS (4)
  1. SERTRALINE [Suspect]
     Active Substance: SERTRALINE HYDROCHLORIDE
     Indication: MENTAL DISORDER
     Dosage: 100 MG, QD
     Route: 065
     Dates: start: 2017, end: 201802
  2. TADALAFIL. [Suspect]
     Active Substance: TADALAFIL
     Indication: PRIAPISM
     Dosage: 5 MG, (3 TIMES PER WEEK)
     Route: 065
  3. QUETIAPINE. [Suspect]
     Active Substance: QUETIAPINE
     Indication: MENTAL DISORDER
     Dosage: 50 MG, QD (NIGHTLY)
     Route: 065
     Dates: start: 2017, end: 201802
  4. TRAZODONE [Suspect]
     Active Substance: TRAZODONE HYDROCHLORIDE
     Indication: MENTAL DISORDER
     Dosage: UNK
     Route: 065
     Dates: end: 2017

REACTIONS (2)
  - Priapism [Recovering/Resolving]
  - Off label use [Unknown]

NARRATIVE: CASE EVENT DATE: 2016
